FAERS Safety Report 5409275-3 (Version None)
Quarter: 2007Q3

REPORT INFORMATION
  Report Type: 
  Country: None (occurrence: None)
  Receive Date: 20070809
  Receipt Date: 20070802
  Transmission Date: 20080115
  Serious: Yes (Other)
  Sender: FDA-Public Use
  Company Number: PHBS2007US13103

PATIENT
  Age: 58 Year
  Sex: Female

DRUGS (6)
  1. ZOLEDRONIC ACID [Suspect]
     Indication: BREAST CANCER METASTATIC
     Dosage: 4 MG EVERY 3 TO 4 WEEKS
     Dates: start: 20050101
  2. RADIATION THERAPY [Concomitant]
  3. CAPECITABINE [Concomitant]
  4. IXABEPILONE [Concomitant]
  5. PREDNISONE TAB [Concomitant]
     Dosage: 50 MG, UNK
  6. CHLORHEXIDINE GLUCONATE [Concomitant]

REACTIONS (12)
  - ACTINOMYCOSIS [None]
  - BONE DISORDER [None]
  - BREAST CANCER [None]
  - CONTRAST MEDIA REACTION [None]
  - INFLAMMATION [None]
  - OEDEMA MOUTH [None]
  - ORAL PAIN [None]
  - ORAL TORUS [None]
  - OSTEOMYELITIS [None]
  - OSTEONECROSIS [None]
  - RADIOTHERAPY [None]
  - SURGERY [None]
